FAERS Safety Report 13872716 (Version 3)
Quarter: 2018Q1

REPORT INFORMATION
  Report Type: Report from Study
  Country: None (occurrence: US)
  Receive Date: 20170816
  Receipt Date: 20180215
  Transmission Date: 20180508
  Serious: Yes (Hospitalization, Other)
  Sender: FDA-Public Use
  Company Number: US-ABBVIE-17K-163-2070436-00

PATIENT
  Sex: Female

DRUGS (2)
  1. HUMIRA [Suspect]
     Active Substance: ADALIMUMAB
     Indication: CROHN^S DISEASE
     Route: 058
  2. HUMIRA [Suspect]
     Active Substance: ADALIMUMAB
     Route: 058
     Dates: start: 2017

REACTIONS (6)
  - Lower respiratory tract infection [Unknown]
  - Adrenal gland operation [Unknown]
  - Staphylococcal infection [Unknown]
  - Urinary tract obstruction [Unknown]
  - Small intestinal obstruction [Unknown]
  - Limb mass [Unknown]

NARRATIVE: CASE EVENT DATE: 2017
